FAERS Safety Report 16526821 (Version 2)
Quarter: 2019Q3

REPORT INFORMATION
  Report Type: Spontaneous
  Country: US (occurrence: US)
  Receive Date: 20190703
  Receipt Date: 20190918
  Transmission Date: 20191004
  Serious: No
  Sender: FDA-Public Use
  Company Number: US-TAKEDA-2019TUS040792

PATIENT
  Sex: Male
  Weight: 110 kg

DRUGS (1)
  1. NINLARO [Suspect]
     Active Substance: IXAZOMIB CITRATE
     Indication: BREAST CANCER METASTATIC
     Dosage: 4 MILLIGRAM, 1/WEEK
     Route: 048
     Dates: start: 201803

REACTIONS (3)
  - Off label use [Unknown]
  - Nasopharyngitis [Unknown]
  - Diarrhoea [Unknown]
